FAERS Safety Report 9736274 (Version 3)
Quarter: 2014Q3

REPORT INFORMATION
  Report Type: Spontaneous
  Country: US (occurrence: US)
  Receive Date: 20131206
  Receipt Date: 20140801
  Transmission Date: 20150326
  Serious: Yes (Hospitalization, Other)
  Sender: FDA-Public Use
  Company Number: US-009507513-1312USA001365

PATIENT
  Sex: Female

DRUGS (1)
  1. NUVARING [Suspect]
     Active Substance: ETHINYL ESTRADIOL\ETONOGESTREL
     Indication: MENORRHAGIA
     Dosage: USE VAGINALLY AS DIRECTED ONCE A MONTH
     Route: 067
     Dates: start: 201110, end: 20120122

REACTIONS (13)
  - Ear pain [Unknown]
  - Chest pain [Unknown]
  - Off label use [Unknown]
  - Headache [Unknown]
  - Pulmonary embolism [Unknown]
  - Pulmonary infarction [Unknown]
  - International normalised ratio increased [Unknown]
  - Lung disorder [Unknown]
  - Malaise [Unknown]
  - Menorrhagia [Recovered/Resolved]
  - Overdose [Unknown]
  - Migraine [Unknown]
  - Iron deficiency anaemia [Unknown]

NARRATIVE: CASE EVENT DATE: 20120122
